FAERS Safety Report 5491275-9 (Version None)
Quarter: 2007Q4

REPORT INFORMATION
  Report Type: 
  Country: None (occurrence: None)
  Receive Date: 20071019
  Receipt Date: 20071010
  Transmission Date: 20080405
  Serious: Yes (Other)
  Sender: FDA-Public Use
  Company Number: AU-GILEAD-2007-0013481

PATIENT
  Age: 57 Year
  Sex: Male

DRUGS (4)
  1. HEPSERA [Suspect]
     Indication: HEPATITIS B
     Route: 065
  2. LAMIVUDINE [Concomitant]
     Indication: HEPATITIS B
     Route: 065
  3. LAMIVUDINE [Concomitant]
     Route: 065
  4. LAMIVUDINE [Concomitant]
     Route: 065

REACTIONS (2)
  - DRUG RESISTANCE [None]
  - HBV DNA INCREASED [None]
